FAERS Safety Report 9423514 (Version 1)
Quarter: 2013Q3

REPORT INFORMATION
  Report Type: Spontaneous
  Country: US (occurrence: US)
  Receive Date: 20130726
  Receipt Date: 20130726
  Transmission Date: 20140515
  Serious: No
  Sender: FDA-Public Use
  Company Number: US-TEVA-421918USA

PATIENT
  Age: 39 Year
  Sex: Female

DRUGS (2)
  1. PARAGARD 380A [Suspect]
     Indication: CONTRACEPTION
     Route: 015
     Dates: start: 20090626, end: 20130723
  2. LEVONORGESTREL [Concomitant]

REACTIONS (2)
  - Device expulsion [Not Recovered/Not Resolved]
  - Medical device complication [Not Recovered/Not Resolved]
